FAERS Safety Report 5024204-2 (Version None)
Quarter: 2006Q2

REPORT INFORMATION
  Report Type: 
  Country: None (occurrence: None)
  Receive Date: 20060426
  Receipt Date: 20060329
  Transmission Date: 20061013
  Serious: Yes (Other)
  Sender: FDA-Public Use
  Company Number: 2006044164

PATIENT
  Age: 60 Year
  Sex: Male
  Weight: 77.1115 kg

DRUGS (7)
  1. LYRICA [Suspect]
     Indication: NEUROPATHY
     Dosage: 100 MG (50 MG 2 IN 1 D) ORAL
     Route: 048
     Dates: start: 20060301, end: 20060301
  2. HUMALOG [Concomitant]
  3. LANTUS [Concomitant]
  4. SYNTHROID [Concomitant]
  5. ALPHA LIPOIC ACID (THIOCTIC ACID) [Concomitant]
  6. GLUTATHIONE  (GLUTATHIONE) [Concomitant]
  7. ADVIL [Concomitant]

REACTIONS (1)
  - BALANCE DISORDER [None]
